FAERS Safety Report 21421367 (Version 1)
Quarter: 2022Q4

REPORT INFORMATION
  Report Type: Spontaneous
  Country: FR (occurrence: FR)
  Receive Date: 20221007
  Receipt Date: 20221007
  Transmission Date: 20230113
  Serious: Yes (Other)
  Sender: FDA-Public Use
  Company Number: FR-SUN PHARMACEUTICAL INDUSTRIES LTD-2022RR-357753

PATIENT
  Age: 75 Year
  Sex: Male

DRUGS (7)
  1. GEMCITABINE [Suspect]
     Active Substance: GEMCITABINE
     Indication: Bladder cancer
     Dosage: 9 CYCLES
     Route: 065
     Dates: start: 201410, end: 201503
  2. GEMCITABINE [Suspect]
     Active Substance: GEMCITABINE
     Dosage: 4 CYCLES
     Route: 065
     Dates: start: 201805, end: 201901
  3. GEMCITABINE [Suspect]
     Active Substance: GEMCITABINE
     Dosage: 6 CYCLES
     Route: 065
     Dates: start: 201910, end: 202002
  4. CARBOPLATIN [Suspect]
     Active Substance: CARBOPLATIN
     Indication: Bladder cancer
     Dosage: UNK
     Route: 065
     Dates: start: 201410, end: 201503
  5. CARBOPLATIN [Suspect]
     Active Substance: CARBOPLATIN
     Dosage: 4 CYCLES
     Route: 065
     Dates: start: 201805, end: 201901
  6. CARBOPLATIN [Suspect]
     Active Substance: CARBOPLATIN
     Dosage: 6 CYCLES
     Route: 065
     Dates: start: 201910, end: 202002
  7. DEXAMETHASONE [Suspect]
     Active Substance: DEXAMETHASONE
     Indication: COVID-19
     Dosage: 6 MILLIGRAM, DAILY
     Route: 065
     Dates: start: 20210329

REACTIONS (3)
  - Therapeutic product effect incomplete [Unknown]
  - Disease progression [Unknown]
  - Off label use [Unknown]

NARRATIVE: CASE EVENT DATE: 20210329
